FAERS Safety Report 4341313-1 (Version None)
Quarter: 2004Q1

REPORT INFORMATION
  Report Type: 
  Country: None (occurrence: None)
  Receive Date: 20040314
  Receipt Date: 20031107
  Transmission Date: 20041129
  Serious: Yes (Disabling)
  Sender: FDA-Public Use
  Company Number: 2003-BP-09562BP(0)

PATIENT
  Age: 65 Year
  Sex: Male
  Weight: 91.63 kg

DRUGS (5)
  1. MOBIC [Suspect]
     Indication: ARTHRALGIA
     Dosage: 7.5 MG (7.5 MG, 1 QD), PO
     Route: 048
     Dates: start: 20031003, end: 20031004
  2. MOBIC [Suspect]
     Indication: OSTEOARTHRITIS
     Dosage: 7.5 MG (7.5 MG, 1 QD), PO
     Route: 048
     Dates: start: 20031003, end: 20031004
  3. LIPITOR [Concomitant]
  4. AMBIEN [Concomitant]
  5. VIOXX [Concomitant]

REACTIONS (1)
  - ARTHRALGIA [None]
